FAERS Safety Report 9599025 (Version 1)
Quarter: 2013Q4

REPORT INFORMATION
  Report Type: Spontaneous
  Country: US (occurrence: US)
  Receive Date: 20131004
  Receipt Date: 20131004
  Transmission Date: 20140711
  Serious: No
  Sender: FDA-Public Use
  Company Number: US-AMGEN-USASP2013027708

PATIENT
  Age: 63 Year
  Sex: Female
  Weight: 90.7 kg

DRUGS (9)
  1. ENBREL [Suspect]
     Indication: PRODUCT USED FOR UNKNOWN INDICATION
     Dosage: 50 MG, QWK
     Route: 058
  2. DICLOFENAC [Concomitant]
     Dosage: 75 MG, UNK
  3. METHOTREXATE [Concomitant]
     Dosage: 2.5 MG, UNK
  4. METFORMIN [Concomitant]
     Dosage: 500 MG, UNK
  5. BENAZEPRIL [Concomitant]
     Dosage: 10 MG, UNK
  6. GLIMEPIRID [Concomitant]
     Dosage: 1 MG, UNK
  7. DOXAZOSIN [Concomitant]
     Dosage: 1 MG, UNK
  8. VITAMIN K                          /00032401/ [Concomitant]
     Dosage: 100 MUG, UNK
  9. VITAMIN D3 [Concomitant]
     Dosage: 5000 IU, UNK

REACTIONS (3)
  - Injection site erythema [Unknown]
  - Injection site reaction [Unknown]
  - Injection site pain [Unknown]
